FAERS Safety Report 5074593-8 (Version None)
Quarter: 2006Q3

REPORT INFORMATION
  Report Type: 
  Country: None (occurrence: None)
  Receive Date: 20060808
  Receipt Date: 20060210
  Transmission Date: 20061208
  Serious: No
  Sender: FDA-Public Use
  Company Number: US-AMGEN-KDL169023

PATIENT
  Sex: Male

DRUGS (11)
  1. PROCRIT [Suspect]
     Indication: RENAL FAILURE CHRONIC
     Route: 058
     Dates: start: 20060119, end: 20060206
  2. PRILOSEC [Concomitant]
     Route: 048
  3. COREG [Concomitant]
     Route: 048
  4. CAPTOPRIL [Concomitant]
     Route: 048
  5. LOVASTATIN [Concomitant]
     Route: 048
  6. FUROSEMIDE [Concomitant]
     Route: 048
  7. FLUOXETINE [Concomitant]
     Route: 048
  8. ALLOPURINOL [Concomitant]
     Route: 048
  9. IRON [Concomitant]
     Route: 048
  10. FISH OIL [Concomitant]
     Route: 048
  11. GLYBURIDE AND METFORMIN HCL [Concomitant]
     Route: 048

REACTIONS (6)
  - ANOREXIA [None]
  - ASTHENIA [None]
  - CHILLS [None]
  - DEPRESSION [None]
  - FEELING ABNORMAL [None]
  - VOMITING [None]
